FAERS Safety Report 8966568 (Version 1)
Quarter: 2012Q4

REPORT INFORMATION
  Report Type: Report from Study
  Country: DE (occurrence: DE)
  Receive Date: 20121217
  Receipt Date: 20121217
  Transmission Date: 20130627
  Serious: Yes (Death, Hospitalization)
  Sender: FDA-Public Use
  Company Number: DE-ELI_LILLY_AND_COMPANY-DE201212003437

PATIENT
  Age: 52 Year
  Sex: Female
  Weight: 60 kg

DRUGS (8)
  1. GEMCITABINE HYDROCHLORIDE [Suspect]
     Indication: LUNG NEOPLASM MALIGNANT
     Dosage: 1250 mg, UNK
     Route: 042
     Dates: start: 20090730
  2. BEVACIZUMAB [Suspect]
     Indication: LUNG NEOPLASM MALIGNANT
     Dosage: 915 mg, UNK
     Route: 042
     Dates: start: 20090730
  3. CARBOPLATIN [Suspect]
     Indication: LUNG NEOPLASM MALIGNANT
  4. CISPLATIN [Suspect]
     Indication: LUNG NEOPLASM MALIGNANT
     Dosage: 136 mg, UNK
     Route: 042
     Dates: start: 20090730
  5. PANTOPRAZOL [Concomitant]
     Dosage: 40 mg, UNK
     Dates: start: 200907
  6. G-CSF [Concomitant]
     Dosage: UNK
     Dates: start: 20090915, end: 20090921
  7. NOVAMINOSULFON [Concomitant]
     Dosage: UNK
     Dates: start: 20090803
  8. MACROGOL [Concomitant]
     Dosage: UNK
     Dates: start: 20090925, end: 20090926

REACTIONS (3)
  - Abdominal pain [Fatal]
  - Pyrexia [Fatal]
  - Leukopenia [Fatal]
